FAERS Safety Report 15627459 (Version 1)
Quarter: 2018Q4

REPORT INFORMATION
  Report Type: Spontaneous
  Country: US (occurrence: US)
  Receive Date: 20181116
  Receipt Date: 20181116
  Transmission Date: 20190205
  Serious: No
  Sender: FDA-Public Use
  Company Number: US-009507513-1811USA006767

PATIENT
  Sex: Female

DRUGS (1)
  1. IMPLANON [Suspect]
     Active Substance: ETONOGESTREL
     Dosage: 1 UNK
     Route: 059

REACTIONS (5)
  - Dizziness [Recovered/Resolved]
  - Depression [Recovered/Resolved]
  - Mood altered [Unknown]
  - Anxiety [Recovered/Resolved]
  - Nausea [Recovered/Resolved]
